FAERS Safety Report 21954685 (Version 1)
Quarter: 2023Q1

REPORT INFORMATION
  Report Type: Report from Study
  Country: US (occurrence: US)
  Receive Date: 20230205
  Receipt Date: 20230205
  Transmission Date: 20230417
  Serious: No
  Sender: FDA-Public Use
  Company Number: US-BEH-2022150544

PATIENT
  Age: 73 Year
  Sex: Female
  Weight: 63.492 kg

DRUGS (7)
  1. HIZENTRA [Suspect]
     Active Substance: HUMAN IMMUNOGLOBULIN G
     Indication: Selective IgM immunodeficiency
     Dosage: 10 GRAM EVERY 14 DAYS
     Route: 058
     Dates: start: 20220929
  2. HIZENTRA [Suspect]
     Active Substance: HUMAN IMMUNOGLOBULIN G
     Indication: Primary immunodeficiency syndrome
     Dosage: 10 GRAM EVERY 14 DAYS
     Route: 058
     Dates: start: 20220929
  3. HIZENTRA [Suspect]
     Active Substance: HUMAN IMMUNOGLOBULIN G
     Dosage: UNK
     Route: 058
  4. HIZENTRA [Suspect]
     Active Substance: HUMAN IMMUNOGLOBULIN G
     Dosage: UNK, BIW
     Route: 058
     Dates: start: 20220925
  5. HIZENTRA [Suspect]
     Active Substance: HUMAN IMMUNOGLOBULIN G
     Dosage: UNK UNK, QOW
     Route: 058
     Dates: start: 20220925
  6. HIZENTRA [Suspect]
     Active Substance: HUMAN IMMUNOGLOBULIN G
     Dosage: UNK
     Route: 058
     Dates: start: 20221129
  7. HIZENTRA [Suspect]
     Active Substance: HUMAN IMMUNOGLOBULIN G
     Dosage: UNK UNK, QOW
     Route: 058
     Dates: start: 20220925

REACTIONS (22)
  - Fatigue [Recovered/Resolved]
  - Disorientation [Recovered/Resolved]
  - Somnolence [Unknown]
  - Feeling abnormal [Unknown]
  - Mental fatigue [Recovered/Resolved]
  - Fatigue [Recovered/Resolved]
  - No adverse event [Not Recovered/Not Resolved]
  - Treatment delayed [Not Recovered/Not Resolved]
  - Product dispensing error [Not Recovered/Not Resolved]
  - Product distribution issue [Not Recovered/Not Resolved]
  - Malaise [Unknown]
  - Asthenia [Recovered/Resolved]
  - No adverse event [Unknown]
  - Product dispensing error [Unknown]
  - Wrong technique in product usage process [Unknown]
  - Infusion site haemorrhage [Not Recovered/Not Resolved]
  - Infusion site discolouration [Not Recovered/Not Resolved]
  - Infusion site induration [Not Recovered/Not Resolved]
  - Visual impairment [Not Recovered/Not Resolved]
  - Infusion site haemorrhage [Unknown]
  - No adverse event [Not Recovered/Not Resolved]
  - Product use complaint [Not Recovered/Not Resolved]

NARRATIVE: CASE EVENT DATE: 20221001
